FAERS Safety Report 7714029-9 (Version None)
Quarter: 2011Q3

REPORT INFORMATION
  Report Type: 
  Country: None (occurrence: None)
  Receive Date: 20110826
  Receipt Date: 20110819
  Transmission Date: 20111222
  Serious: Yes (Hospitalization)
  Sender: FDA-Public Use
  Company Number: US-ASTRAZENECA-2011SE49884

PATIENT
  Age: 57 Year
  Sex: Male
  Weight: 83.9 kg

DRUGS (9)
  1. CLARITIN [Concomitant]
     Dosage: TID
  2. SEROQUEL [Suspect]
     Route: 048
  3. SEROQUEL [Suspect]
     Route: 048
  4. SEROQUEL [Suspect]
     Indication: SLEEP DISORDER
     Route: 048
  5. DEPAKOTE [Concomitant]
  6. RESIDIME [Concomitant]
     Dosage: HS
  7. SEROQUEL [Suspect]
     Indication: PSYCHOTIC DISORDER
     Route: 048
  8. LITHIUM CARBONATE [Concomitant]
  9. TELEPRAM [Concomitant]

REACTIONS (3)
  - OFF LABEL USE [None]
  - INSOMNIA [None]
  - DRUG DOSE OMISSION [None]
